FAERS Safety Report 8799100 (Version 1)
Quarter: 2012Q4

REPORT INFORMATION
  Report Type: Spontaneous
  Country: US (occurrence: None)
  Receive Date: 20120914
  Receipt Date: 20120914
  Transmission Date: 20130627
  Serious: Yes (Hospitalization)
  Sender: FDA-Public Use
  Company Number: ACO_31837_2012

PATIENT
  Age: 56 Year
  Sex: Female
  Weight: 61.2 kg

DRUGS (14)
  1. AMPYRA [Suspect]
     Indication: GAIT DISTURBANCE
     Route: 048
     Dates: end: 20120823
  2. ZANAFLEX (TIZANIDINE HYDROCHLORIDE) [Concomitant]
  3. WELLBUTRIN (BUPROPION HYDROCHLORIDE) [Concomitant]
  4. TRAZODONE (TRAZODONE) [Concomitant]
  5. MECLIZINE (MECLOZINE HYDROCHLORIDE) [Concomitant]
  6. LEVACET (ACETYLSALICYLIC ACID, PARACETAMOL, SALICYLAMIDE) [Concomitant]
  7. DIHYDROCODEINE (DIHYDROCODEINE BITARTRATE) [Concomitant]
  8. MINOCYCLINE (MINOCYCLINE HYDROCHLORIDE) [Concomitant]
  9. PROCHLORPERAZINE (PROCHLORPERAZINE MALEATE) [Concomitant]
  10. COUMADIN (WARFARIN SODIUM) [Concomitant]
  11. FLUOXETINE (FLUOXETINE HYDROCHLORIDE) [Concomitant]
  12. DIAZEPAM (DIAZEPAM) [Concomitant]
  13. BACLOFEN (BACLOFEN) [Concomitant]
  14. DEXILANT (DEXLANSOPRAZOLE) [Concomitant]

REACTIONS (1)
  - Convulsion [None]
